FAERS Safety Report 19637166 (Version 1)
Quarter: 2021Q3

REPORT INFORMATION
  Report Type: Spontaneous
  Country: IT (occurrence: IT)
  Receive Date: 20210730
  Receipt Date: 20210730
  Transmission Date: 20211014
  Serious: Yes (Other)
  Sender: FDA-Public Use
  Company Number: IT-SUN PHARMACEUTICAL INDUSTRIES LTD-2021RR-306220

PATIENT
  Age: 59 Year
  Sex: Female

DRUGS (9)
  1. IRINOTECAN [Suspect]
     Active Substance: IRINOTECAN
     Dosage: 140 MILLIGRAM/SQ. METER/D, 3 CYCLES
     Route: 065
  2. IRINOTECAN [Suspect]
     Active Substance: IRINOTECAN
     Indication: COLORECTAL CANCER METASTATIC
     Dosage: 160 MILLIGRAM/SQ. METER, D1, 15
     Route: 065
  3. 5?FLUOROURACIL [Suspect]
     Active Substance: FLUOROURACIL
     Dosage: 800 MILLIGRAM/SQ. METER, DAILY, 3 CYCLES
     Route: 065
  4. OXALIPLATIN. [Suspect]
     Active Substance: OXALIPLATIN
     Indication: COLORECTAL CANCER METASTATIC
     Dosage: 80 MILLIGRAM/SQ. METER, D8, 22
     Route: 065
  5. BEVACIZUMAB. [Suspect]
     Active Substance: BEVACIZUMAB
     Indication: COLORECTAL CANCER METASTATIC
     Dosage: 5 MILLIGRAM/KILOGRAM, D1, 15
     Route: 065
  6. IRINOTECAN [Suspect]
     Active Substance: IRINOTECAN
     Dosage: 120 MILLIGRAM/SQ. METER, 3 CYCLES
     Route: 065
  7. 5?FLUOROURACIL [Suspect]
     Active Substance: FLUOROURACIL
     Indication: COLORECTAL CANCER METASTATIC
     Dosage: 900 MILLIGRAM/SQ. METER, DAILY, D1?2, 8?9, 15?16, 22?23
     Route: 065
  8. IRINOTECAN [Suspect]
     Active Substance: IRINOTECAN
     Dosage: 100 MILLIGRAM/SQ. METER, UNK
     Route: 065
  9. 5?FLUOROURACIL [Suspect]
     Active Substance: FLUOROURACIL
     Dosage: 750 MILLIGRAM/SQ. METER, DAILY, 3 CYCLES
     Route: 065

REACTIONS (13)
  - Asthenia [Unknown]
  - Neuropathy peripheral [Unknown]
  - Constipation [Unknown]
  - Pyrexia [Unknown]
  - Diarrhoea [Unknown]
  - Mucosal inflammation [Unknown]
  - Epistaxis [Unknown]
  - Therapeutic product effect incomplete [Unknown]
  - Disease progression [Unknown]
  - Nausea [Unknown]
  - Rhinitis [Unknown]
  - Alopecia [Unknown]
  - Infusion related hypersensitivity reaction [Unknown]
